FAERS Safety Report 4973327-2 (Version None)
Quarter: 2006Q2

REPORT INFORMATION
  Report Type: 
  Country: None (occurrence: None)
  Receive Date: 20060414
  Receipt Date: 20051019
  Transmission Date: 20061013
  Serious: Yes (Hospitalization, Other)
  Sender: FDA-Public Use
  Company Number: US-MERCK-0510USA08359

PATIENT
  Age: 49 Year
  Sex: Male
  Weight: 91 kg

DRUGS (5)
  1. VIOXX [Suspect]
     Indication: PAIN IN EXTREMITY
     Route: 048
     Dates: start: 20000113, end: 20001213
  2. VIOXX [Suspect]
     Route: 048
     Dates: start: 20000113, end: 20010101
  3. UNIVASC [Concomitant]
     Indication: HYPERTENSION
     Route: 048
  4. ZANAFLEX [Concomitant]
     Route: 048
  5. EFFEXOR XR [Concomitant]
     Indication: AGGRESSION
     Route: 048

REACTIONS (10)
  - CEREBROVASCULAR ACCIDENT [None]
  - CHOLECYSTITIS CHRONIC [None]
  - CONVULSION [None]
  - CROHN'S DISEASE [None]
  - DIVERTICULUM DUODENAL [None]
  - HALLUCINATION [None]
  - HIATUS HERNIA [None]
  - HYPERTENSION [None]
  - METABOLIC ENCEPHALOPATHY [None]
  - UMBILICAL HERNIA [None]
